FAERS Safety Report 9830989 (Version 2)
Quarter: 2014Q1

REPORT INFORMATION
  Report Type: Report from Study
  Country: BE (occurrence: BE)
  Receive Date: 20140120
  Receipt Date: 20140120
  Transmission Date: 20141002
  Serious: Yes (Hospitalization)
  Sender: FDA-Public Use
  Company Number: BE-ABBVIE-13P-013-1171974-00

PATIENT
  Sex: Male
  Weight: 80 kg

DRUGS (3)
  1. HUMIRA [Suspect]
     Indication: ANKYLOSING SPONDYLITIS
     Route: 058
     Dates: start: 20101213
  2. HUMIRA [Suspect]
  3. BRUFEN [Concomitant]
     Indication: ANKYLOSING SPONDYLITIS
     Dosage: IN THE EVENING
     Route: 048
     Dates: start: 1990

REACTIONS (1)
  - Hearing impaired [Unknown]
